FAERS Safety Report 17831055 (Version 2)
Quarter: 2020Q2

REPORT INFORMATION
  Report Type: Spontaneous
  Country: FR (occurrence: FR)
  Receive Date: 20200527
  Receipt Date: 20200604
  Transmission Date: 20200714
  Serious: Yes (Other)
  Sender: FDA-Public Use
  Company Number: FR-JNJFOC-20200519454

PATIENT
  Age: 28 Year
  Sex: Male

DRUGS (8)
  1. TREMFYA [Suspect]
     Active Substance: GUSELKUMAB
  2. PARACETAMOL [Concomitant]
     Active Substance: ACETAMINOPHEN
  3. TREMFYA [Suspect]
     Active Substance: GUSELKUMAB
  4. ERYFLUID [Concomitant]
     Active Substance: ERYTHROMYCIN
     Indication: ACNE
  5. LYRICA [Concomitant]
     Active Substance: PREGABALIN
     Dosage: 1 TABLET MORNING AND EVENING FOR 7 DAYS THEN INCREASED TO 1 TABLET IN THE MORNING AND 3 TABLETS IN T
     Dates: start: 201812
  6. RAXONE [Suspect]
     Active Substance: IDEBENONE
     Indication: OPTIC NEURITIS
     Dosage: 150 MG, FILM COATED TABLET
     Route: 048
     Dates: start: 201807
  7. XERIAL 30 [Concomitant]
     Dosage: APPLICATION ON KNEES AND LEGS IN THE EVENING
  8. TREMFYA [Suspect]
     Active Substance: GUSELKUMAB
     Indication: PSORIASIS
     Route: 058
     Dates: start: 201903, end: 20200228

REACTIONS (1)
  - Neuropathy peripheral [Not Recovered/Not Resolved]

NARRATIVE: CASE EVENT DATE: 201912
